FAERS Safety Report 4431125-2 (Version None)
Quarter: 2004Q3

REPORT INFORMATION
  Report Type: 
  Country: None (occurrence: None)
  Receive Date: 20040823
  Receipt Date: 20040816
  Transmission Date: 20050211
  Serious: No
  Sender: FDA-Public Use
  Company Number: 2004UW17408

PATIENT
  Age: 58 Year
  Sex: Female

DRUGS (3)
  1. CRESTOR [Suspect]
     Dosage: 10 MG  PO
     Route: 048
     Dates: start: 20040417
  2. ACTONEL [Concomitant]
  3. SYNTHROID [Concomitant]

REACTIONS (1)
  - VISUAL DISTURBANCE [None]
